FAERS Safety Report 4705342-8 (Version None)
Quarter: 2005Q2

REPORT INFORMATION
  Report Type: 
  Country: None (occurrence: None)
  Receive Date: 20050629
  Receipt Date: 20050606
  Transmission Date: 20051028
  Serious: Yes (Hospitalization)
  Sender: FDA-Public Use
  Company Number: PHBS2005ES08066

PATIENT
  Age: 30 Year
  Sex: Female

DRUGS (2)
  1. BUTAZOLIDINA (PHENYLBUTAZONE) SUGAR-COATED TABLET [Suspect]
     Indication: ARTHRALGIA
     Dosage: 200 MG, BID, ORAL
     Route: 048
     Dates: start: 20050309, end: 20050330
  2. YASMIN [Concomitant]

REACTIONS (3)
  - LYMPHADENOPATHY [None]
  - STOMATITIS [None]
  - TOXIC SKIN ERUPTION [None]
